FAERS Safety Report 6518131-9 (Version None)
Quarter: 2009Q4

REPORT INFORMATION
  Report Type: 
  Country: None (occurrence: None)
  Receive Date: 20091223
  Receipt Date: 20091223
  Transmission Date: 20100525
  Serious: Yes (Disabling, Other)
  Sender: FDA-Public Use
  Company Number: None

PATIENT
  Age: 6 Year
  Sex: Female
  Weight: 18.1439 kg

DRUGS (1)
  1. LUPRON DEPOT [Suspect]
     Indication: PRECOCIOUS PUBERTY
     Dosage: 11.25MG 28DAY CYCLE
     Dates: start: 19940310, end: 19990529

REACTIONS (4)
  - ARTHRALGIA [None]
  - BONE PAIN [None]
  - ERYTHEMA MULTIFORME [None]
  - MYALGIA [None]
